FAERS Safety Report 5868405-X (Version None)
Quarter: 2008Q3

REPORT INFORMATION
  Report Type: 
  Country: None (occurrence: None)
  Receive Date: 20080903
  Receipt Date: 20080826
  Transmission Date: 20090109
  Serious: Yes (Death, Other)
  Sender: FDA-Public Use
  Company Number: US-WYE-H05722908

PATIENT
  Age: 78 Year
  Sex: Male

DRUGS (4)
  1. RAPAMUNE [Suspect]
     Indication: LYMPHOPROLIFERATIVE DISORDER
     Dosage: DAILY DOSE (NOS) ADMINISTERED TO MAINTAIN PLASMA LEVELS OF 8-16 NG/ML
     Route: 048
  2. IMMUNOGLOBULINS [Concomitant]
     Indication: LYMPHOPROLIFERATIVE DISORDER
     Dosage: ON DAYS 1-5 (0.4 MG/KG)
     Route: 042
  3. METHYLPREDNISOLONE [Concomitant]
     Indication: LYMPHOPROLIFERATIVE DISORDER
     Dosage: ON DAYS 1-5 (100 MG)
     Route: 042
  4. METHYLPREDNISOLONE [Concomitant]
     Dosage: 3 WEEK STEROID TAPER
     Route: 065

REACTIONS (3)
  - DISEASE PROGRESSION [None]
  - DISEASE RECURRENCE [None]
  - EPSTEIN-BARR VIRAEMIA [None]
